FAERS Safety Report 7132170-9 (Version None)
Quarter: 2010Q4

REPORT INFORMATION
  Report Type: 
  Country: None (occurrence: None)
  Receive Date: 20101202
  Receipt Date: 20101124
  Transmission Date: 20110411
  Serious: Yes (Hospitalization)
  Sender: FDA-Public Use
  Company Number: AU-NOVOPROD-315217

PATIENT
  Age: 41 Year
  Sex: Female
  Weight: 70 kg

DRUGS (2)
  1. PROTAPHANE PENFILL [Suspect]
     Indication: DIABETES MELLITUS
     Dosage: 20 IU, QD
     Dates: start: 20090408
  2. ACTRAPID HM PENFILL [Suspect]
     Indication: DIABETES MELLITUS
     Dosage: SLIDING SCALE 4-6-8 OR 10 UNITS
     Dates: start: 20090408

REACTIONS (1)
  - COMA [None]
